FAERS Safety Report 20219012 (Version 1)
Quarter: 2021Q4

REPORT INFORMATION
  Report Type: Spontaneous
  Country: US (occurrence: US)
  Receive Date: 20211222
  Receipt Date: 20211222
  Transmission Date: 20220303
  Serious: No
  Sender: FDA-Public Use
  Company Number: US-BIOHAVEN PHARMACEUTICALS-2021BHV01136

PATIENT
  Age: 66 Year
  Sex: Female
  Weight: 109.75 kg

DRUGS (9)
  1. NURTEC ODT [Suspect]
     Active Substance: RIMEGEPANT SULFATE
     Dosage: 75 MG, AS NEEDED?TREATMENT START STOP DATE:20-08-21//
     Route: 060
     Dates: start: 20210820
  2. NURTEC ODT [Suspect]
     Active Substance: RIMEGEPANT SULFATE
     Dosage: TREATMENT START STOP DATE:20-08-21//
  3. EMGALITY [Concomitant]
     Active Substance: GALCANEZUMAB-GNLM
     Dosage: UNK?TREATMENT START STOP DATE:20-08-21//
     Dates: start: 20210820
  4. JARDIANCE [Concomitant]
     Active Substance: EMPAGLIFLOZIN
     Dosage: 50 IU, 2X/DAY, IN THE MORNING AND AT NIGHT?TREATMENT START STOP DATE:20-08-21//
  5. LEVEMIR [Concomitant]
     Active Substance: INSULIN DETEMIR
     Dosage: 50 IU, 2X/DAY, IN THE MORNING AND AT NIGHT?TREATMENT START STOP DATE:20-08-21//
  6. SEROQUEL [Concomitant]
     Active Substance: QUETIAPINE FUMARATE
     Dosage: 100 MG, 1X/DAY AT NIGHT?TREATMENT START STOP DATE:20-08-21//
  7. TIZANIDINE [Concomitant]
     Active Substance: TIZANIDINE
     Dosage: 6 MG, 1X/DAY AT BEDTIME?TREATMENT START STOP DATE:20-08-21//
  8. OXYBUTYNIN [Concomitant]
     Active Substance: OXYBUTYNIN
  9. SYNTHROID [Concomitant]
     Active Substance: LEVOTHYROXINE SODIUM
     Dosage: 0.88 UNK, 1X/DAY?TREATMENT START STOP DATE:20-08-21//

REACTIONS (3)
  - Headache [Not Recovered/Not Resolved]
  - Therapeutic response shortened [Not Recovered/Not Resolved]
  - Product packaging difficult to open [Unknown]

NARRATIVE: CASE EVENT DATE: 20210801
